FAERS Safety Report 6546744-7 (Version None)
Quarter: 2010Q1

REPORT INFORMATION
  Report Type: 
  Country: None (occurrence: None)
  Receive Date: 20100122
  Receipt Date: 20100118
  Transmission Date: 20100710
  Serious: Yes (Death, Hospitalization)
  Sender: FDA-Public Use
  Company Number: DE-CELGENEUS-062-21880-10011312

PATIENT
  Age: 77 Year
  Sex: Female

DRUGS (8)
  1. REVLIMID [Suspect]
     Indication: MULTIPLE MYELOMA
     Route: 048
     Dates: start: 20091222, end: 20100112
  2. REVLIMID [Suspect]
     Route: 048
     Dates: start: 20090817
  3. REVLIMID [Suspect]
     Route: 048
     Dates: start: 20090727, end: 20090809
  4. CLEXANE [Concomitant]
     Indication: DRUG USE FOR UNKNOWN INDICATION
     Route: 065
  5. BONDRONAT [Concomitant]
     Indication: DRUG USE FOR UNKNOWN INDICATION
     Route: 065
  6. NOVAMINSULFON [Concomitant]
     Indication: PAIN
     Route: 065
  7. DELIX [Concomitant]
     Indication: DRUG USE FOR UNKNOWN INDICATION
     Route: 065
  8. IRON [Concomitant]
     Indication: DRUG USE FOR UNKNOWN INDICATION
     Route: 048

REACTIONS (2)
  - HEPATIC FAILURE [None]
  - PAIN [None]
